FAERS Safety Report 4801926-7 (Version None)
Quarter: 2005Q4

REPORT INFORMATION
  Report Type: 
  Country: None (occurrence: None)
  Receive Date: 20051012
  Receipt Date: 20050930
  Transmission Date: 20060501
  Serious: Yes (Hospitalization)
  Sender: FDA-Public Use
  Company Number: 2005P1000393

PATIENT
  Age: 61 Year
  Sex: Male

DRUGS (8)
  1. RETEVASE [Suspect]
     Indication: ACUTE MYOCARDIAL INFARCTION
     Dosage: UNKNOWN; IV
     Route: 042
     Dates: start: 20050314, end: 20050314
  2. ABCIXIMAB (ABCIXIMAB) [Suspect]
     Indication: ACUTE MYOCARDIAL INFARCTION
     Dosage: UNKNOWN; IV
     Route: 042
     Dates: start: 20050314
  3. ATORVASTATIN [Concomitant]
  4. WARFARIN [Concomitant]
  5. FUROSEMIDE [Concomitant]
  6. RAMIPRIL [Concomitant]
  7. BISOPROLOL [Concomitant]
  8. AMIODARONE HCL [Concomitant]

REACTIONS (5)
  - DILATATION VENTRICULAR [None]
  - DYSPNOEA [None]
  - EJECTION FRACTION DECREASED [None]
  - ELECTROCARDIOGRAM T WAVE INVERSION [None]
  - VENTRICULAR DYSFUNCTION [None]
